FAERS Safety Report 15458707 (Version 1)
Quarter: 2018Q4

REPORT INFORMATION
  Report Type: Spontaneous
  Country: US (occurrence: US)
  Receive Date: 20181001
  Receipt Date: 20181001
  Transmission Date: 20190204
  Serious: Yes (Other)
  Sender: FDA-Public Use
  Company Number: None

PATIENT
  Age: 32 Year
  Sex: Male
  Weight: 56.25 kg

DRUGS (3)
  1. KEPPRA [Suspect]
     Active Substance: LEVETIRACETAM
     Dates: start: 20180825, end: 20180825
  2. TIZANIDINE. [Concomitant]
     Active Substance: TIZANIDINE
  3. ATIVAN [Suspect]
     Active Substance: LORAZEPAM
     Dates: start: 20180825, end: 20180825

REACTIONS (2)
  - Seizure [None]
  - Drug ineffective [None]

NARRATIVE: CASE EVENT DATE: 20180825
